FAERS Safety Report 5303541-8 (Version None)
Quarter: 2007Q2

REPORT INFORMATION
  Report Type: 
  Country: None (occurrence: None)
  Receive Date: 20070420
  Receipt Date: 20070413
  Transmission Date: 20071010
  Serious: Yes (Death)
  Sender: FDA-Public Use
  Company Number: IT-ROXANE LABORATORIES, INC-2007-BP-05286RO

PATIENT
  Age: 30 Year
  Sex: Male

DRUGS (2)
  1. CITALOPRAM HYDROBROMIDE [Suspect]
     Indication: DEPRESSION
  2. 2,4-DINITOPHENOL [Suspect]

REACTIONS (4)
  - ANTIDEPRESSANT DRUG LEVEL [None]
  - POISONING [None]
  - PULMONARY OEDEMA [None]
  - VISCERAL CONGESTION [None]
